FAERS Safety Report 9397999 (Version 2)
Quarter: 2015Q4

REPORT INFORMATION
  Report Type: Report from Study
  Country: AR (occurrence: AR)
  Receive Date: 20130712
  Receipt Date: 20151128
  Transmission Date: 20160305
  Serious: Yes (Hospitalization, Other)
  Sender: FDA-Public Use
  Company Number: PHHY2013AR074276

PATIENT
  Age: 91 Year
  Sex: Female

DRUGS (2)
  1. ACLASTA [Suspect]
     Active Substance: ZOLEDRONIC ACID
     Dosage: 1 DF, UNK
     Route: 042
     Dates: start: 2010
  2. ACLASTA [Suspect]
     Active Substance: ZOLEDRONIC ACID
     Indication: BONE DISORDER
     Dosage: UNK UNK, Q12MO
     Route: 042
     Dates: start: 2008

REACTIONS (5)
  - Respiratory disorder [Recovering/Resolving]
  - Malaise [Recovered/Resolved]
  - Cardiac failure [Recovering/Resolving]
  - Bronchospasm [Recovering/Resolving]
  - Cardiac failure [Recovered/Resolved]

NARRATIVE: CASE EVENT DATE: 20121201
